FAERS Safety Report 7481035-1 (Version None)
Quarter: 2011Q2

REPORT INFORMATION
  Report Type: 
  Country: None (occurrence: None)
  Receive Date: 20110516
  Receipt Date: 20110505
  Transmission Date: 20111010
  Serious: Yes (Other)
  Sender: FDA-Public Use
  Company Number: GB-JNJFOC-20110503473

PATIENT
  Age: 51 Year
  Sex: Female

DRUGS (4)
  1. ATAZANAVIR [Concomitant]
     Indication: HIV INFECTION
     Route: 065
     Dates: end: 20110112
  2. RITONAVIR [Concomitant]
     Indication: HIV INFECTION
     Route: 065
  3. TRUVADA [Concomitant]
     Indication: HIV INFECTION
     Route: 065
  4. DARUNAVIR ETHANOLATE [Suspect]
     Indication: HIV INFECTION
     Route: 048
     Dates: start: 20110112

REACTIONS (3)
  - ARTHRALGIA [None]
  - MYALGIA [None]
  - ALANINE AMINOTRANSFERASE INCREASED [None]
